FAERS Safety Report 10224508 (Version 1)
Quarter: 2014Q2

REPORT INFORMATION
  Report Type: Spontaneous
  Country: US (occurrence: US)
  Receive Date: 20140609
  Receipt Date: 20140609
  Transmission Date: 20141212
  Serious: No
  Sender: FDA-Public Use
  Company Number: US-009507513-1406USA003291

PATIENT
  Sex: Female
  Weight: 98.41 kg

DRUGS (1)
  1. NEXPLANON [Suspect]
     Dosage: 1 DF, 68 MG/ONE ROD EVERY THREE YEARS
     Route: 059
     Dates: start: 201202

REACTIONS (3)
  - Device breakage [Unknown]
  - Device deployment issue [Unknown]
  - No adverse event [Unknown]
